FAERS Safety Report 25065401 (Version 1)
Quarter: 2025Q1

REPORT INFORMATION
  Report Type: Spontaneous
  Country: US (occurrence: US)
  Receive Date: 20250311
  Receipt Date: 20250311
  Transmission Date: 20250409
  Serious: Yes (Other)
  Sender: GE HEALTHCARE
  Company Number: US-GE HEALTHCARE-2025CSU002553

PATIENT
  Sex: Female

DRUGS (2)
  1. OMNIPAQUE [Suspect]
     Active Substance: IOHEXOL
     Indication: Computerised tomogram
     Route: 042
     Dates: start: 20250224, end: 20250224
  2. READI-CAT 2 [Concomitant]
     Active Substance: BARIUM SULFATE
     Route: 048
     Dates: start: 20250224, end: 20250224

REACTIONS (12)
  - Hallucination, visual [Unknown]
  - Depression [Unknown]
  - Decreased appetite [Unknown]
  - Abdominal distension [Unknown]
  - Disorientation [Unknown]
  - Musculoskeletal stiffness [Unknown]
  - Vertigo [Unknown]
  - Peripheral swelling [Unknown]
  - Arthralgia [Unknown]
  - Abdominal discomfort [Unknown]
  - Headache [Unknown]
  - Adverse reaction [Unknown]
